FAERS Safety Report 8530895-1 (Version None)
Quarter: 2012Q3

REPORT INFORMATION
  Report Type: 
  Country: None (occurrence: None)
  Receive Date: 20120710
  Receipt Date: 20120625
  Transmission Date: 20120928
  Serious: Yes (Hospitalization)
  Sender: FDA-Public Use
  Company Number: 2012AP001614

PATIENT
  Age: 8 Year
  Sex: Male

DRUGS (9)
  1. DEXTROMETHORPHAN HYDROBROMIDE [Suspect]
     Indication: NASOPHARYNGITIS
  2. DIPHENHYDRAMINE HCL [Concomitant]
  3. AMFETAMINE SULFATE [Concomitant]
  4. METHYLPHENIDATE [Concomitant]
  5. CLONIDINE [Concomitant]
  6. CITALOPRAM HYDROBROMIDE [Suspect]
     Indication: ATTENTION DEFICIT/HYPERACTIVITY DISORDER
  7. CITALOPRAM HYDROBROMIDE [Suspect]
     Indication: POST-TRAUMATIC STRESS DISORDER
  8. CITALOPRAM HYDROBROMIDE [Suspect]
     Indication: OFF LABEL USE
  9. BENZODIAZEPINE DERIVATIVES [Concomitant]

REACTIONS (19)
  - OFF LABEL USE [None]
  - TACHYCARDIA [None]
  - MENTAL STATUS CHANGES [None]
  - SEROTONIN SYNDROME [None]
  - AUTONOMIC NERVOUS SYSTEM IMBALANCE [None]
  - TREMOR [None]
  - SALIVARY HYPERSECRETION [None]
  - CLONUS [None]
  - ELECTROCARDIOGRAM QT PROLONGED [None]
  - URINARY INCONTINENCE [None]
  - NEUROMYOPATHY [None]
  - INCOHERENT [None]
  - MYDRIASIS [None]
  - SOMNOLENCE [None]
  - FLUSHING [None]
  - TORTICOLLIS [None]
  - AGITATION [None]
  - HYPERTENSION [None]
  - ENCEPHALOPATHY [None]
